FAERS Safety Report 22200314 (Version 4)
Quarter: 2023Q2

REPORT INFORMATION
  Report Type: Spontaneous
  Country: US (occurrence: US)
  Receive Date: 20230412
  Receipt Date: 20230615
  Transmission Date: 20230722
  Serious: Yes (Hospitalization, Other)
  Sender: FDA-Public Use
  Company Number: US-BANNER LIFE SCIENCES, LLC-2023BAN000078

PATIENT

DRUGS (2)
  1. BAFIERTAM [Suspect]
     Active Substance: MONOMETHYL FUMARATE
     Indication: Multiple sclerosis
     Dosage: 190 MILLIGRAM, BID
     Route: 048
  2. BAFIERTAM [Suspect]
     Active Substance: MONOMETHYL FUMARATE
     Dosage: 190 MILLIGRAM, BID
     Route: 048
     Dates: start: 202305

REACTIONS (15)
  - Loss of consciousness [Unknown]
  - Malaise [Unknown]
  - Gait inability [Unknown]
  - Dehydration [Unknown]
  - Gait disturbance [Unknown]
  - Insomnia [Unknown]
  - Urinary incontinence [Unknown]
  - Memory impairment [Unknown]
  - Confusional state [Unknown]
  - Urinary tract infection [Unknown]
  - Sepsis [Unknown]
  - Fatigue [Unknown]
  - Pancreatitis [Unknown]
  - Cholelithiasis [Unknown]
  - Product dose omission issue [Unknown]

NARRATIVE: CASE EVENT DATE: 20230331
